FAERS Safety Report 5349551-6 (Version None)
Quarter: 2007Q2

REPORT INFORMATION
  Report Type: 
  Country: None (occurrence: None)
  Receive Date: 20070510
  Receipt Date: 20070129
  Transmission Date: 20071010
  Serious: No
  Sender: FDA-Public Use
  Company Number: WAES 0701USA04799

PATIENT
  Age: 78 Year
  Sex: Male
  Weight: 73.9363 kg

DRUGS (1)
  1. ZOLINZA [Suspect]
     Indication: T-CELL LYMPHOMA
     Dosage: 400MG/DAILY/PO
     Route: 048
     Dates: start: 20070102, end: 20070125

REACTIONS (3)
  - ERYTHEMA [None]
  - HYPERKERATOSIS [None]
  - PAIN [None]
